FAERS Safety Report 7328690-4 (Version None)
Quarter: 2011Q1

REPORT INFORMATION
  Report Type: 
  Country: None (occurrence: None)
  Receive Date: 20110222
  Receipt Date: 20110202
  Transmission Date: 20110831
  Serious: Yes (Other)
  Sender: FDA-Public Use
  Company Number: 2011SP007576

PATIENT
  Sex: Female

DRUGS (1)
  1. NASONEX [Suspect]
     Indication: PRODUCT USED FOR UNKNOWN INDICATION
     Dosage: NAS
     Route: 045

REACTIONS (5)
  - ASTHENIA [None]
  - AMNESIA [None]
  - EPISTAXIS [None]
  - HEARING IMPAIRED [None]
  - MOUTH HAEMORRHAGE [None]
